FAERS Safety Report 25712823 (Version 1)
Quarter: 2025Q3

REPORT INFORMATION
  Report Type: Spontaneous
  Country: GB (occurrence: GB)
  Receive Date: 20250821
  Receipt Date: 20250821
  Transmission Date: 20251021
  Serious: Yes (Other)
  Sender: ESPERION THERAPEUTICS
  Company Number: None

PATIENT
  Age: 68 Year
  Sex: Female

DRUGS (2)
  1. BEMPEDOIC ACID [Suspect]
     Active Substance: BEMPEDOIC ACID
     Indication: Low density lipoprotein increased
     Route: 065
     Dates: start: 20250805, end: 20250810
  2. AMLODIPINE [Concomitant]
     Active Substance: AMLODIPINE BESYLATE
     Indication: Hypertension
     Route: 065

REACTIONS (1)
  - Joint injury [Not Recovered/Not Resolved]

NARRATIVE: CASE EVENT DATE: 20250811
